FAERS Safety Report 11581224 (Version 1)
Quarter: 2015Q4

REPORT INFORMATION
  Report Type: Spontaneous
  Country: US (occurrence: US)
  Receive Date: 20151001
  Receipt Date: 20151001
  Transmission Date: 20160304
  Serious: Yes (Hospitalization)
  Sender: FDA-Public Use
  Company Number: US-ROCHE-707773

PATIENT
  Sex: Female
  Weight: 74.1 kg

DRUGS (1)
  1. PEGASYS [Suspect]
     Active Substance: PEGINTERFERON ALFA-2A
     Indication: HEPATITIS C
     Dosage: DATE OF USE: 6 MONTHS
     Route: 058

REACTIONS (4)
  - Influenza [Unknown]
  - Drug dose omission [Unknown]
  - Pain [Unknown]
  - Dehydration [Unknown]
